FAERS Safety Report 23516137 (Version 1)
Quarter: 2024Q1

REPORT INFORMATION
  Report Type: Report from Study
  Country: US (occurrence: US)
  Receive Date: 20240213
  Receipt Date: 20240213
  Transmission Date: 20240410
  Serious: Yes (Other)
  Sender: FDA-Public Use
  Company Number: US-ABBVIE-5628404

PATIENT
  Sex: Female

DRUGS (1)
  1. SKYRIZI [Suspect]
     Active Substance: RISANKIZUMAB-RZAA
     Indication: Product used for unknown indication
     Route: 058

REACTIONS (7)
  - Neoplasm malignant [Not Recovered/Not Resolved]
  - Rash [Not Recovered/Not Resolved]
  - COVID-19 [Not Recovered/Not Resolved]
  - Therapeutic product effect decreased [Unknown]
  - Pruritus [Not Recovered/Not Resolved]
  - Musculoskeletal stiffness [Unknown]
  - Eye disorder [Unknown]

NARRATIVE: CASE EVENT DATE: 20230101
